FAERS Safety Report 8867821 (Version 1)
Quarter: 2012Q4

REPORT INFORMATION
  Report Type: 
  Country: US (occurrence: US)
  Receive Date: 20121026
  Receipt Date: 20121026
  Transmission Date: 20130627
  Serious: No
  Sender: FDA-Public Use
  Company Number: US-AMGEN-USASP2012041388

PATIENT
  Sex: Female
  Weight: 61.22 kg

DRUGS (2)
  1. ENBREL [Suspect]
     Indication: PRODUCT USED FOR UNKNOWN INDICATION
     Dosage: 25 mg, UNK
     Route: 058
  2. PREDNISONE [Concomitant]
     Dosage: 1 mg, UNK

REACTIONS (4)
  - Rectal lesion [Recovered/Resolved]
  - Anorectal disorder [Recovered/Resolved]
  - Injection site pain [Unknown]
  - Injection site bruising [Unknown]
